FAERS Safety Report 21341292 (Version 9)
Quarter: 2023Q2

REPORT INFORMATION
  Report Type: Report from Study
  Country: US (occurrence: US)
  Receive Date: 20220916
  Receipt Date: 20230408
  Transmission Date: 20230722
  Serious: No
  Sender: FDA-Public Use
  Company Number: US-NOVARTISTESTPH-NVSC2022US208841

PATIENT
  Sex: Male

DRUGS (7)
  1. OMNITROPE [Suspect]
     Active Substance: SOMATROPIN
     Indication: Product used for unknown indication
     Dosage: 0.4 ML (VIAL)
     Route: 058
  2. OMNITROPE [Suspect]
     Active Substance: SOMATROPIN
     Dosage: 0.4 ML (VIAL)
     Route: 030
  3. OMNITROPE [Suspect]
     Active Substance: SOMATROPIN
     Dosage: 0.4 ML (VIAL)
     Route: 030
  4. OMNITROPE [Suspect]
     Active Substance: SOMATROPIN
     Dosage: 0.4 ML (VIAL)
     Route: 030
  5. OMNITROPE [Suspect]
     Active Substance: SOMATROPIN
     Dosage: 5.8 MG VIAL (6X A WEEK)
     Route: 065
  6. OMNITROPE [Suspect]
     Active Substance: SOMATROPIN
     Dosage: 5.8 MG  VIAL (6X A WEEK)
     Route: 065
  7. OMNITROPE [Suspect]
     Active Substance: SOMATROPIN
     Dosage: 5.8 MG  VIAL (6X A WEEK)
     Route: 065

REACTIONS (4)
  - Incorrect dose administered [Unknown]
  - Liquid product physical issue [Unknown]
  - Underdose [Unknown]
  - Product dose omission issue [Unknown]
